FAERS Safety Report 4733470-X (Version None)
Quarter: 2005Q3

REPORT INFORMATION
  Report Type: 
  Country: None (occurrence: None)
  Receive Date: 20050801
  Receipt Date: 20050801
  Transmission Date: 20060218
  Serious: Yes (Hospitalization)
  Sender: FDA-Public Use
  Company Number: None

PATIENT
  Age: 50 Year

DRUGS (4)
  1. PHENYTOIN [Suspect]
     Indication: CONVULSION
     Dosage: 100MG TID
     Dates: start: 20050504
  2. M.V.I. [Concomitant]
  3. THIAMINE [Concomitant]
  4. PHENOBARBITAL [Concomitant]

REACTIONS (1)
  - LABORATORY TEST ABNORMAL [None]
